FAERS Safety Report 8514452 (Version 3)
Quarter: 2012Q4

REPORT INFORMATION
  Report Type: 
  Country: US (occurrence: US)
  Receive Date: 20120416
  Receipt Date: 20120828
  Transmission Date: 20130627
  Serious: Yes (Death, Hospitalization, Other)
  Sender: FDA-Public Use
  Company Number: US-FRI-1000029239

PATIENT
  Age: 81 None
  Sex: Male

DRUGS (13)
  1. DALIRESP [Suspect]
     Indication: CHRONIC OBSTRUCTIVE PULMONARY DISEASE
     Dosage: 500 mcg
     Route: 048
     Dates: start: 20111128, end: 20120430
  2. SIMVASTATIN [Suspect]
     Indication: BLOOD CHOLESTEROL INCREASED
     Dosage: 10 mg
     Dates: end: 201204
  3. LEVAQUIN [Suspect]
     Indication: BRONCHITIS
     Dates: start: 201203, end: 201203
  4. ALLOPURINOL [Concomitant]
     Indication: NEPHROLITHIASIS
     Dosage: 300 mg
  5. ASMANEX [Concomitant]
     Dosage: 220 mcg
  6. SPIRIVA [Concomitant]
  7. ALBUTEROL [Concomitant]
  8. FORADIL [Concomitant]
  9. VITAMIN C [Concomitant]
  10. VITAMIN D [Concomitant]
  11. VITAMIN E [Concomitant]
  12. ASPIRIN [Concomitant]
  13. CENTRUM SILVER [Concomitant]

REACTIONS (20)
  - Bronchitis [Unknown]
  - Fall [Unknown]
  - Compression fracture [Unknown]
  - Atrial fibrillation [Unknown]
  - Pneumonia [Unknown]
  - Sepsis [Fatal]
  - Eructation [Unknown]
  - Tremor [Unknown]
  - Nausea [Recovered/Resolved]
  - Dry mouth [Unknown]
  - Dysgeusia [Unknown]
  - Oedema peripheral [Unknown]
  - Muscular weakness [Unknown]
  - Asthenia [Unknown]
  - Weight decreased [Unknown]
  - Frequent bowel movements [Unknown]
  - Decreased appetite [Recovered/Resolved]
  - Ageusia [Recovered/Resolved]
  - Gastrooesophageal reflux disease [Unknown]
  - Swelling face [Unknown]
